FAERS Safety Report 6725335-9 (Version None)
Quarter: 2010Q2

REPORT INFORMATION
  Report Type: 
  Country: None (occurrence: None)
  Receive Date: 20100512
  Receipt Date: 20100420
  Transmission Date: 20101027
  Serious: Yes (Other)
  Sender: FDA-Public Use
  Company Number: WAES 0910USA01303

PATIENT
  Age: 39 Year
  Sex: Male

DRUGS (3)
  1. MK-0518 (RALTEGRAVIR POTASSIUM) [Suspect]
     Indication: HIV INFECTION
     Dosage: 400 MG/BID, PO
     Route: 048
     Dates: start: 20090820, end: 20100310
  2. LAMIVUDINE + ZIDOVUDINE [Suspect]
     Indication: HIV INFECTION
     Dosage: 1 TAB/BID, PO
     Route: 048
     Dates: start: 20100316
  3. LOPINAVIR AND RITONAVIR [Suspect]
     Indication: HIV INFECTION
     Dosage: 1 TAB/BID, PO
     Route: 048
     Dates: start: 20090820

REACTIONS (13)
  - DEAFNESS BILATERAL [None]
  - DEAFNESS NEUROSENSORY [None]
  - DIARRHOEA [None]
  - DIZZINESS [None]
  - DYSSTASIA [None]
  - GASTRITIS [None]
  - IMMUNE RECONSTITUTION SYNDROME [None]
  - IMPETIGO [None]
  - NEUROPATHY PERIPHERAL [None]
  - PAIN [None]
  - RHINITIS ALLERGIC [None]
  - UPPER RESPIRATORY TRACT INFECTION [None]
  - VESTIBULITIS [None]
